FAERS Safety Report 18693448 (Version 1)
Quarter: 2021Q1

REPORT INFORMATION
  Report Type: Spontaneous
  Country: US (occurrence: US)
  Receive Date: 20210104
  Receipt Date: 20210104
  Transmission Date: 20210419
  Serious: No
  Sender: FDA-Public Use
  Company Number: US-SA-2020SA373614

PATIENT

DRUGS (1)
  1. DUPIXENT [Suspect]
     Active Substance: DUPILUMAB
     Indication: DERMATITIS ATOPIC

REACTIONS (6)
  - Back pain [Unknown]
  - Injury associated with device [Unknown]
  - Pain [Unknown]
  - Lethargy [Unknown]
  - Fatigue [Unknown]
  - Needle issue [Unknown]

NARRATIVE: CASE EVENT DATE: 20200904
